FAERS Safety Report 5846124-3 (Version None)
Quarter: 2008Q3

REPORT INFORMATION
  Report Type: 
  Country: None (occurrence: None)
  Receive Date: 20080814
  Receipt Date: 20080804
  Transmission Date: 20090109
  Serious: Yes (Hospitalization, Other)
  Sender: FDA-Public Use
  Company Number: US-MERCK-0805USA00918

PATIENT
  Age: 82 Year
  Sex: Female
  Weight: 64 kg

DRUGS (10)
  1. FOSAMAX [Suspect]
     Indication: OSTEOPOROSIS
     Route: 048
     Dates: start: 20030401, end: 20040901
  2. FOSAMAX [Suspect]
     Route: 048
     Dates: start: 20060801, end: 20061101
  3. HYDROXYUREA [Concomitant]
     Route: 065
  4. AMIODARONE [Concomitant]
     Route: 065
  5. METOPROLOL [Concomitant]
     Route: 065
  6. NORVASC [Concomitant]
     Route: 065
  7. SYNTHROID [Concomitant]
     Route: 065
  8. ASPIRIN [Concomitant]
     Route: 065
  9. HYDROCHLOROTHIAZIDE [Concomitant]
     Route: 065
  10. ACTONEL [Suspect]
     Indication: OSTEOPOROSIS
     Route: 048
     Dates: start: 20010101, end: 20030401

REACTIONS (8)
  - BLOOD CHOLESTEROL INCREASED [None]
  - HEART RATE INCREASED [None]
  - IMPAIRED HEALING [None]
  - OSTEONECROSIS [None]
  - PAIN IN JAW [None]
  - PERIODONTAL DISEASE [None]
  - SQUAMOUS CELL CARCINOMA [None]
  - TOOTH INFECTION [None]
